FAERS Safety Report 7728641-4 (Version None)
Quarter: 2011Q3

REPORT INFORMATION
  Report Type: 
  Country: None (occurrence: None)
  Receive Date: 20110831
  Receipt Date: 20110831
  Transmission Date: 20111222
  Serious: Yes (Life-Threatening, Hospitalization)
  Sender: FDA-Public Use
  Company Number: None

PATIENT
  Age: 63 Year
  Sex: Male
  Weight: 57.8 kg

DRUGS (1)
  1. WARFARIN SODIUM [Suspect]
     Indication: ATRIAL FIBRILLATION
     Dosage: 5 MG EVERY DAY PO
     Route: 048
     Dates: start: 20100301

REACTIONS (9)
  - CONDITION AGGRAVATED [None]
  - DRUG INTERACTION [None]
  - CHRONIC OBSTRUCTIVE PULMONARY DISEASE [None]
  - HAEMATOCRIT DECREASED [None]
  - INTERNATIONAL NORMALISED RATIO INCREASED [None]
  - ASTHENIA [None]
  - FALL [None]
  - DIZZINESS [None]
  - GASTRITIS HAEMORRHAGIC [None]
